FAERS Safety Report 18338095 (Version 2)
Quarter: 2021Q1

REPORT INFORMATION
  Report Type: Spontaneous
  Country: US (occurrence: US)
  Receive Date: 20201002
  Receipt Date: 20210226
  Transmission Date: 20210419
  Serious: Yes (Death)
  Sender: FDA-Public Use
  Company Number: US-ASTRAZENECA-2020SF25792

PATIENT
  Age: 30827 Day
  Sex: Female
  Weight: 46.3 kg

DRUGS (62)
  1. PRILOSEC [Suspect]
     Active Substance: OMEPRAZOLE MAGNESIUM
     Indication: GASTROOESOPHAGEAL REFLUX DISEASE
     Route: 048
     Dates: start: 2009
  2. PROTONIX [Suspect]
     Active Substance: PANTOPRAZOLE SODIUM
     Indication: GASTROOESOPHAGEAL REFLUX DISEASE
     Route: 065
     Dates: start: 2009, end: 2015
  3. HYDRALAZINE [Concomitant]
     Active Substance: HYDRALAZINE HYDROCHLORIDE
     Indication: BLOOD PRESSURE ABNORMAL
     Dates: start: 2013, end: 2014
  4. CIPROFLOXACIN. [Concomitant]
     Active Substance: CIPROFLOXACIN
  5. HYDROCODONE BITARTRATE AND ACETAMINOPHEN [Concomitant]
     Active Substance: ACETAMINOPHEN\HYDROCODONE BITARTRATE
  6. VITAMIN D [Concomitant]
     Active Substance: VITAMIN D NOS
  7. MUCINEX [Concomitant]
     Active Substance: GUAIFENESIN
  8. SENNA [Concomitant]
     Active Substance: SENNA LEAF\SENNOSIDES\SENNOSIDES A AND B
  9. ANORO ELLIPTA [Concomitant]
     Active Substance: UMECLIDINIUM BROMIDE\VILANTEROL TRIFENATATE
  10. LACTIC ACID. [Concomitant]
     Active Substance: LACTIC ACID
  11. PRILOSEC [Suspect]
     Active Substance: OMEPRAZOLE MAGNESIUM
     Indication: GASTROOESOPHAGEAL REFLUX DISEASE
     Route: 048
     Dates: start: 2009, end: 2015
  12. DEXILANT [Suspect]
     Active Substance: DEXLANSOPRAZOLE
     Indication: GASTROOESOPHAGEAL REFLUX DISEASE
     Route: 065
     Dates: start: 2013, end: 2015
  13. ZANTAC [Concomitant]
     Active Substance: RANITIDINE HYDROCHLORIDE
  14. VENTOLIN [Concomitant]
     Active Substance: ALBUTEROL SULFATE
  15. ALENDRONATE [Concomitant]
     Active Substance: ALENDRONATE SODIUM
  16. LIDOCAIN [Concomitant]
     Active Substance: LIDOCAINE
  17. BARIUM SULFATE [Concomitant]
     Active Substance: BARIUM SULFATE
  18. DEXILANT [Suspect]
     Active Substance: DEXLANSOPRAZOLE
     Indication: GASTROOESOPHAGEAL REFLUX DISEASE
     Route: 065
     Dates: start: 2009, end: 2015
  19. PROTONIX [Suspect]
     Active Substance: PANTOPRAZOLE SODIUM
     Indication: GASTROOESOPHAGEAL REFLUX DISEASE
     Route: 065
     Dates: start: 2009
  20. PEPCID [Concomitant]
     Active Substance: FAMOTIDINE
  21. CETRIZINE [Concomitant]
     Active Substance: CETIRIZINE HYDROCHLORIDE
  22. LOTREL [Concomitant]
     Active Substance: AMLODIPINE BESYLATE\BENAZEPRIL HYDROCHLORIDE
  23. ROCEPHINE [Concomitant]
     Active Substance: CEFTRIAXONE SODIUM
  24. LISINOPRIL. [Concomitant]
     Active Substance: LISINOPRIL
  25. LOPERAMIDE [Concomitant]
     Active Substance: LOPERAMIDE
  26. DEXTROSE. [Concomitant]
     Active Substance: DEXTROSE
  27. DICYCLOMINE [Concomitant]
     Active Substance: DICYCLOMINE HYDROCHLORIDE
  28. SPIRONOLACTONE. [Concomitant]
     Active Substance: SPIRONOLACTONE
  29. NEXIUM [Suspect]
     Active Substance: ESOMEPRAZOLE MAGNESIUM
     Indication: GASTROOESOPHAGEAL REFLUX DISEASE
     Route: 048
  30. DEXAMETHASONE. [Concomitant]
     Active Substance: DEXAMETHASONE
  31. CITALOPRAM [Concomitant]
     Active Substance: CITALOPRAM HYDROBROMIDE
  32. FUROSEMIDE. [Concomitant]
     Active Substance: FUROSEMIDE
  33. DULOXETINE. [Concomitant]
     Active Substance: DULOXETINE
  34. NITROGLYCERINE [Concomitant]
     Active Substance: NITROGLYCERIN
  35. MORPHINE [Concomitant]
     Active Substance: MORPHINE
  36. DUONEB [Concomitant]
     Active Substance: ALBUTEROL SULFATE\IPRATROPIUM BROMIDE
  37. METHYLPREDNISOLONE. [Concomitant]
     Active Substance: METHYLPREDNISOLONE
  38. ALBUTEROL. [Concomitant]
     Active Substance: ALBUTEROL
  39. PRILOSEC [Suspect]
     Active Substance: OMEPRAZOLE MAGNESIUM
     Indication: GASTROOESOPHAGEAL REFLUX DISEASE
     Dosage: GENERIC
     Route: 065
     Dates: start: 2013
  40. TRAMADOL. [Concomitant]
     Active Substance: TRAMADOL
  41. PROAIR HFA [Concomitant]
     Active Substance: ALBUTEROL SULFATE
  42. FUROSEMIDE. [Concomitant]
     Active Substance: FUROSEMIDE
  43. PREDNISONE. [Concomitant]
     Active Substance: PREDNISONE
  44. KEPPRA [Concomitant]
     Active Substance: LEVETIRACETAM
  45. COLACE [Concomitant]
     Active Substance: DOCUSATE SODIUM
  46. AZITHROMYCIN ANHYDROUS. [Concomitant]
     Active Substance: AZITHROMYCIN ANHYDROUS
  47. SULFAMETHOXAZOLE [Concomitant]
     Active Substance: SULFAMETHOXAZOLE
  48. COREG [Concomitant]
     Active Substance: CARVEDILOL
  49. PRILOSEC [Suspect]
     Active Substance: OMEPRAZOLE MAGNESIUM
     Indication: GASTROOESOPHAGEAL REFLUX DISEASE
     Dosage: GENERIC
     Route: 065
     Dates: start: 2009
  50. PROTONIX [Suspect]
     Active Substance: PANTOPRAZOLE SODIUM
     Indication: GASTROOESOPHAGEAL REFLUX DISEASE
     Route: 065
     Dates: start: 20130725
  51. NAPROXEN. [Concomitant]
     Active Substance: NAPROXEN
     Indication: PAIN
     Dates: start: 2012, end: 2013
  52. FLOVENT [Concomitant]
     Active Substance: FLUTICASONE PROPIONATE
  53. COMBIVENT [Concomitant]
     Active Substance: ALBUTEROL SULFATE\IPRATROPIUM BROMIDE
  54. NITROSTAT [Concomitant]
     Active Substance: NITROGLYCERIN
  55. SODIUM CHLORIDE. [Concomitant]
     Active Substance: SODIUM CHLORIDE
  56. MOMETASONE [Concomitant]
     Active Substance: MOMETASONE
  57. HEPARIN [Concomitant]
     Active Substance: HEPARIN SODIUM
  58. GLYCERIN. [Concomitant]
     Active Substance: GLYCERIN
  59. TIOTROPIUM [Concomitant]
     Active Substance: TIOTROPIUM
  60. AMLODIPINE BESYLATE. [Concomitant]
     Active Substance: AMLODIPINE BESYLATE
  61. FENTANYL. [Concomitant]
     Active Substance: FENTANYL
  62. METRONIDAZOLE. [Concomitant]
     Active Substance: METRONIDAZOLE

REACTIONS (3)
  - Colon adenoma [Unknown]
  - Gastric cancer [Fatal]
  - Rebound acid hypersecretion [Unknown]

NARRATIVE: CASE EVENT DATE: 20130827
